FAERS Safety Report 5329491-9 (Version None)
Quarter: 2007Q2

REPORT INFORMATION
  Report Type: 
  Country: None (occurrence: None)
  Receive Date: 20070221
  Receipt Date: 20060324
  Transmission Date: 20071010
  Serious: Yes (Other)
  Sender: FDA-Public Use
  Company Number: BDI-008065

PATIENT
  Age: 38 Year
  Sex: Female
  Weight: 52.27 kg

DRUGS (2)
  1. ISOVUE-370 [Suspect]
     Indication: ABDOMINAL PAIN
     Dosage: 100 ML ONCE IV
     Route: 042
     Dates: start: 20060309, end: 20060309
  2. ISOVUE-370 [Suspect]
     Indication: COMPUTERISED TOMOGRAM
     Dosage: 100 ML ONCE IV
     Route: 042
     Dates: start: 20060309, end: 20060309

REACTIONS (1)
  - ANAPHYLACTOID REACTION [None]
